FAERS Safety Report 5995614-1 (Version None)
Quarter: 2008Q4

REPORT INFORMATION
  Report Type: 
  Country: None (occurrence: None)
  Receive Date: 20081212
  Receipt Date: 20081013
  Transmission Date: 20090506
  Serious: No
  Sender: FDA-Public Use
  Company Number: US-ABBOTT-08P-163-0479371-00

PATIENT
  Sex: Female
  Weight: 51.302 kg

DRUGS (8)
  1. HUMIRA [Suspect]
     Indication: CROHN'S DISEASE
     Dosage: LOADING DOSE
     Route: 048
     Dates: start: 20080929
  2. MEDROXYPROGESTERONE ACETATE [Concomitant]
     Indication: CONTRACEPTION
     Route: 030
  3. VALPROATE SODIUM [Concomitant]
     Indication: BIPOLAR DISORDER
     Route: 048
  4. MIRTAZAPINE [Concomitant]
     Indication: BIPOLAR DISORDER
     Route: 048
  5. NISEDITINE [Concomitant]
     Indication: DRUG USE FOR UNKNOWN INDICATION
  6. ACETYLSALICYLIC ACID SRT [Concomitant]
     Indication: DRUG USE FOR UNKNOWN INDICATION
     Route: 048
  7. IRON INJECTION [Concomitant]
     Indication: ANAEMIA
  8. INFLIXIMAB [Concomitant]
     Indication: CROHN'S DISEASE
     Route: 042

REACTIONS (3)
  - NAUSEA [None]
  - RASH [None]
  - TREMOR [None]
